FAERS Safety Report 10071662 (Version 3)
Quarter: 2014Q2

REPORT INFORMATION
  Report Type: Spontaneous
  Country: AU (occurrence: AU)
  Receive Date: 20140411
  Receipt Date: 20140430
  Transmission Date: 20141212
  Serious: Yes (Hospitalization, Other)
  Sender: FDA-Public Use
  Company Number: AU-ROCHE-1380940

PATIENT
  Sex: Male

DRUGS (7)
  1. XOLAIR [Suspect]
     Indication: ASTHMA
     Route: 058
     Dates: start: 20131220
  2. XOLAIR [Suspect]
     Indication: ASTHMA
     Route: 058
     Dates: start: 20140226, end: 20140226
  3. XOLAIR [Suspect]
     Route: 058
     Dates: start: 20140402, end: 20140402
  4. XOLAIR [Suspect]
     Route: 058
  5. PREDNISONE [Concomitant]
     Route: 065
     Dates: start: 20140324, end: 20140327
  6. VENTOLIN [Concomitant]
     Route: 065
     Dates: start: 20140324, end: 20140331
  7. SERETIDE [Concomitant]
     Route: 065
     Dates: start: 20140324, end: 20140331

REACTIONS (1)
  - Asthma [Recovered/Resolved]
